FAERS Safety Report 6167102-3 (Version None)
Quarter: 2009Q2

REPORT INFORMATION
  Report Type: 
  Country: None (occurrence: None)
  Receive Date: 20090424
  Receipt Date: 20090422
  Transmission Date: 20091009
  Serious: Yes (Life-Threatening, Other)
  Sender: FDA-Public Use
  Company Number: US-BRISTOL-MYERS SQUIBB COMPANY-14556013

PATIENT
  Age: 66 Year
  Sex: Male
  Weight: 82 kg

DRUGS (12)
  1. GLUCOPHAGE [Suspect]
     Indication: DIABETES MELLITUS
     Dosage: 20MAY04-31JAN08(500MG BID);31JAN08-23OCT08(1 DOSAGE FORM=50/1000MG;TDD 100/200MG)
     Route: 048
     Dates: start: 20040520, end: 20081023
  2. LANTUS [Suspect]
     Indication: DIABETES MELLITUS
     Dosage: 1 DOSAGE FORM = 55 U
     Route: 058
     Dates: start: 20020226
  3. ACTOS [Suspect]
     Indication: DIABETES MELLITUS
     Route: 048
     Dates: start: 19991012, end: 20081023
  4. JANUMET [Suspect]
     Dosage: 1 DOSAGE FORM = 50/1000MG
     Route: 048
     Dates: start: 20080131, end: 20081023
  5. LIPITOR [Concomitant]
     Dates: start: 20031218
  6. NEBIVOLOL [Concomitant]
     Dates: start: 20080717, end: 20081023
  7. MICARDIS HCT [Concomitant]
     Dates: start: 20040623, end: 20081023
  8. VERAPAMIL HCL [Concomitant]
     Dates: start: 20040623, end: 20081023
  9. PLAVIX [Concomitant]
     Dates: start: 20080819, end: 20081016
  10. ASPIRIN [Concomitant]
     Dates: start: 20080717
  11. LORCET-HD [Concomitant]
     Dates: start: 20080930, end: 20081023
  12. PREVACID [Concomitant]

REACTIONS (3)
  - BLINDNESS [None]
  - CONVULSION [None]
  - CORONARY ARTERY BYPASS [None]
